FAERS Safety Report 8857183 (Version 6)
Quarter: 2013Q4

REPORT INFORMATION
  Report Type: Report from Study
  Country: JP (occurrence: JP)
  Receive Date: 20121024
  Receipt Date: 20131126
  Transmission Date: 20140711
  Serious: Yes (Hospitalization, Other)
  Sender: FDA-Public Use
  Company Number: JP-VERTEX PHARMACEUTICAL INC.-2012-023414

PATIENT
  Age: 62 Year
  Sex: Male

DRUGS (22)
  1. VX-950 (TELAPREVIR) [Suspect]
     Indication: CHRONIC HEPATITIS C
     Dosage: 2250 MG, QD
     Route: 048
     Dates: start: 20120417, end: 20120518
  2. REBETOL [Suspect]
     Indication: CHRONIC HEPATITIS C
     Dosage: 800 MG, QD
     Route: 048
     Dates: start: 20120417, end: 20120430
  3. REBETOL [Suspect]
     Dosage: 600 MG, QD
     Route: 048
     Dates: start: 20120501, end: 20120514
  4. REBETOL [Suspect]
     Dosage: 400 MG, QD
     Route: 048
     Dates: start: 20120515, end: 20120518
  5. REBETOL [Suspect]
     Dosage: 200 MG, QD
     Route: 048
     Dates: start: 20120605, end: 20120611
  6. REBETOL [Suspect]
     Dosage: 400 MG, QD
     Route: 048
     Dates: start: 20120612, end: 20120618
  7. REBETOL [Suspect]
     Dosage: 800 MG, QD
     Route: 048
     Dates: start: 20120619, end: 20120716
  8. REBETOL [Suspect]
     Dosage: 600 MG, QD
     Route: 048
     Dates: start: 20120717, end: 20120730
  9. REBETOL [Suspect]
     Dosage: 400 MG, QD
     Route: 048
     Dates: start: 20120731, end: 20120907
  10. PEGINTRON [Suspect]
     Indication: CHRONIC HEPATITIS C
     Dosage: 1.5 ?G/KG, WEEKLY
     Route: 058
     Dates: start: 20120417, end: 20120508
  11. PEGINTRON [Suspect]
     Dosage: 0.75 ?G/KG, WEEKLY
     Route: 058
     Dates: start: 20120515, end: 20120515
  12. PEGINTRON [Suspect]
     Dosage: 0.75 ?G/KG, WEEKLY
     Route: 058
     Dates: start: 20120605, end: 20120612
  13. PEGINTRON [Suspect]
     Dosage: 1.5 ?G/KG, WEEKLY
     Route: 058
     Dates: start: 20120619, end: 20120731
  14. PEGINTRON [Suspect]
     Dosage: 0.75 ?G/KG, WEEKLY
     Route: 058
     Dates: start: 20120807, end: 20120807
  15. PEGINTRON [Suspect]
     Dosage: 1.5 ?G/KG, WEEKLY
     Route: 058
     Dates: start: 20120814, end: 20120904
  16. ZYLORIC [Concomitant]
     Dosage: 100 MG, QD
     Route: 048
     Dates: start: 20120420, end: 20120518
  17. DERMOVATE [Concomitant]
     Dosage: 5 G/ TUBE, 25 G
     Route: 061
     Dates: start: 20120519, end: 20120618
  18. PETROLATUM [Concomitant]
     Dosage: 50 MG, QD
     Route: 051
     Dates: start: 20120519, end: 20120604
  19. ALLELOCK OD [Concomitant]
     Dosage: 10 MG, QD
     Route: 048
     Dates: start: 20120519
  20. ALLELOCK [Concomitant]
     Dosage: 10 MG, QD
     Route: 048
     Dates: start: 20120519, end: 20120618
  21. ZOSYN [Concomitant]
     Dosage: 13.5 G, QD
     Route: 041
     Dates: start: 20120908, end: 20120910
  22. SULBACILLIN [Concomitant]
     Dosage: 3 G, QD
     Route: 041
     Dates: start: 20120911, end: 20120919

REACTIONS (2)
  - Pleurisy [Recovered/Resolved]
  - Neutrophil count decreased [Recovered/Resolved]
